FAERS Safety Report 4448593-2 (Version None)
Quarter: 2004Q3

REPORT INFORMATION
  Report Type: 
  Country: None (occurrence: None)
  Receive Date: 20040909
  Receipt Date: 20040831
  Transmission Date: 20050211
  Serious: Yes (Other)
  Sender: FDA-Public Use
  Company Number: DEU-2004-0000959

PATIENT
  Age: 53 Year
  Sex: Female

DRUGS (1)
  1. MORPHINE SULFATE [Suspect]
     Indication: CANCER PAIN
     Dosage: 100 MG, TID, ORAL
     Route: 048
     Dates: start: 20040827, end: 20040829

REACTIONS (6)
  - ACCIDENTAL OVERDOSE [None]
  - DIZZINESS [None]
  - MEDICATION ERROR [None]
  - NAUSEA [None]
  - SEDATION [None]
  - VOMITING [None]
